FAERS Safety Report 7615625-X (Version None)
Quarter: 2011Q3

REPORT INFORMATION
  Report Type: 
  Country: None (occurrence: None)
  Receive Date: 20110711
  Receipt Date: 20110613
  Transmission Date: 20111222
  Serious: Yes (Hospitalization)
  Sender: FDA-Public Use
  Company Number: 14554349

PATIENT
  Age: 77 Year
  Sex: Male

DRUGS (6)
  1. WARFARIN SODIUM [Suspect]
     Indication: THROMBOSIS PROPHYLAXIS
     Dosage: 6 MILLIGRAM  1 DAY
     Route: 048
     Dates: start: 20090305
  2. PLACEBO [Suspect]
     Indication: THROMBOSIS PROPHYLAXIS
     Route: 048
     Dates: start: 20090305
  3. ATENOLOL [Concomitant]
  4. DIGOXIN [Concomitant]
  5. ENALAPRIL MALEATE [Concomitant]
  6. HYPOTHIAZIDE (HYDROCHLOROTHIAZIDE) [Concomitant]

REACTIONS (15)
  - TRICUSPID VALVE INCOMPETENCE [None]
  - PROSTATIC ADENOMA [None]
  - URINARY RETENTION [None]
  - RENAL FAILURE CHRONIC [None]
  - DILATATION ATRIAL [None]
  - DIVERTICULUM [None]
  - CARDIAC HYPERTROPHY [None]
  - PULMONARY EMBOLISM [None]
  - AORTIC ARTERIOSCLEROSIS [None]
  - AORTIC DILATATION [None]
  - HYDRONEPHROSIS [None]
  - PROCTOCOLITIS [None]
  - HIATUS HERNIA [None]
  - BRONCHITIS [None]
  - RENAL ATROPHY [None]
